FAERS Safety Report 5946565-X (Version None)
Quarter: 2008Q4

REPORT INFORMATION
  Report Type: 
  Country: None (occurrence: None)
  Receive Date: 20081107
  Receipt Date: 20081107
  Transmission Date: 20090506
  Serious: Yes (Other)
  Sender: FDA-Public Use
  Company Number: None

PATIENT
  Age: 55 Year
  Sex: Female
  Weight: 62.5964 kg

DRUGS (1)
  1. CYMBALTA [Suspect]
     Indication: DEPRESSION
     Dosage: 30MG 1 A DAY PO
     Route: 048
     Dates: start: 20061115, end: 20081017

REACTIONS (15)
  - AFFECT LABILITY [None]
  - AGGRESSION [None]
  - ASTHMA [None]
  - COUGH [None]
  - DISTURBANCE IN ATTENTION [None]
  - DRUG WITHDRAWAL SYNDROME [None]
  - EATING DISORDER [None]
  - EYE PAIN [None]
  - FEELING ABNORMAL [None]
  - HEADACHE [None]
  - HYPERPHAGIA [None]
  - IMPAIRED WORK ABILITY [None]
  - PAIN [None]
  - PARAESTHESIA [None]
  - THINKING ABNORMAL [None]
